FAERS Safety Report 17431101 (Version 3)
Quarter: 2020Q1

REPORT INFORMATION
  Report Type: Spontaneous
  Country: FR (occurrence: FR)
  Receive Date: 20200218
  Receipt Date: 20200220
  Transmission Date: 20200409
  Serious: Yes (Death, Other)
  Sender: FDA-Public Use
  Company Number: FR-PFIZER INC-2020071388

PATIENT
  Age: 82 Year
  Sex: Female
  Weight: 67 kg

DRUGS (15)
  1. LAMALINE [Concomitant]
     Dosage: UNK UNK, AS NEEDED (IF NECESSARY)
     Route: 048
  2. LEVOTHYROX [Concomitant]
     Active Substance: LEVOTHYROXINE
     Dosage: 75 MG, 1X/DAY
     Route: 048
  3. CALTRATE WITH VITAMIN D [Concomitant]
     Active Substance: CALCIUM CARBONATE\CHOLECALCIFEROL
     Dosage: 1 DF, 1X/DAY (600 MG/400 IU)
     Route: 048
  4. SPECIAFOLDINE [Concomitant]
     Active Substance: FOLIC ACID
     Dosage: 10 MG, WEEKLY
     Route: 048
     Dates: start: 2013
  5. DICLOFENAC [Concomitant]
     Active Substance: DICLOFENAC
     Dosage: UNK
     Route: 003
  6. IMETH [Suspect]
     Active Substance: METHOTREXATE SODIUM
     Indication: RHEUMATOID ARTHRITIS
     Dosage: 15 MG, WEEKLY
     Route: 048
     Dates: start: 2013, end: 20191223
  7. ZOPICLONE [Concomitant]
     Active Substance: ZOPICLONE
     Dosage: 7.5 MG, 1X/DAY (1 TABLET IF NEEDED)
     Route: 048
  8. PREVISCAN [Concomitant]
     Dosage: UNK
     Route: 048
  9. CORTANCYL [Concomitant]
     Active Substance: PREDNISONE
     Dosage: UNK
     Route: 048
  10. DIPROSONE [BETAMETHASONE SODIUM PHOSPHATE] [Concomitant]
     Dosage: UNK
     Route: 003
  11. DOLIPRANE [Concomitant]
     Active Substance: ACETAMINOPHEN
     Dosage: UNK UNK, AS NEEDED (IF NECESSARY)
     Route: 048
  12. PANTOPRAZOLE [Concomitant]
     Active Substance: PANTOPRAZOLE
     Dosage: 40 MG, 1X/DAY
     Route: 048
  13. ATARAX [Concomitant]
     Active Substance: HYDROXYZINE HYDROCHLORIDE
     Dosage: 1 DF, AS NEEDED (1 TABLET IF NEEDED)
     Route: 048
  14. PROLIA [Concomitant]
     Active Substance: DENOSUMAB
     Dosage: 60 MG, UNK (60 MG PER 6 MONTHS)
     Route: 057
  15. TENORETIC [Concomitant]
     Active Substance: ATENOLOL\CHLORTHALIDONE
     Dosage: 1 DF, 1X/DAY (50 MG/12.5 MG)
     Route: 048

REACTIONS (2)
  - Acute kidney injury [Fatal]
  - Pancytopenia [Fatal]

NARRATIVE: CASE EVENT DATE: 20191225
